FAERS Safety Report 14228155 (Version 5)
Quarter: 2018Q4

REPORT INFORMATION
  Report Type: Spontaneous
  Country: US (occurrence: US)
  Receive Date: 20171127
  Receipt Date: 20181022
  Transmission Date: 20190204
  Serious: Yes (Hospitalization, Other)
  Sender: FDA-Public Use
  Company Number: US-OTSUKA-2017_014430

PATIENT
  Age: 19 Year
  Sex: Female
  Weight: 61.6 kg

DRUGS (14)
  1. ABILIFY [Suspect]
     Active Substance: ARIPIPRAZOLE
     Indication: BIPOLAR DISORDER
     Dosage: 1 DF, QHS (1 DF=STARTING AT 5MG TO 35MG)
     Route: 048
     Dates: start: 2003, end: 2014
  2. LITHOBID [Concomitant]
     Active Substance: LITHIUM CARBONATE
     Dosage: 900 MG, QD (300MG AT AM AND 600MG AT BED TIME)
     Route: 065
  3. WELLBUTRIN [Concomitant]
     Active Substance: BUPROPION HYDROCHLORIDE
     Indication: PRODUCT USED FOR UNKNOWN INDICATION
     Dosage: 300 MG, QD
     Route: 065
  4. WELLBUTRIN [Concomitant]
     Active Substance: BUPROPION HYDROCHLORIDE
     Dosage: 100 MG, QD (IN MORNING)
     Route: 065
  5. TRILEPTAL [Concomitant]
     Active Substance: OXCARBAZEPINE
     Dosage: 1050 MG, QD (450MG AT AM AND 600MG AT BED TIME)
     Route: 065
  6. SEROQUEL [Concomitant]
     Active Substance: QUETIAPINE FUMARATE
     Dosage: 50MG, QD (IN EVENING)
     Route: 065
  7. ZITHROMAX [Concomitant]
     Active Substance: AZITHROMYCIN DIHYDRATE
     Indication: PRODUCT USED FOR UNKNOWN INDICATION
     Dosage: 1 DF, QD
     Route: 065
  8. NEXPLANON [Concomitant]
     Active Substance: ETONOGESTREL
     Indication: PRODUCT USED FOR UNKNOWN INDICATION
     Dosage: 68 MG, UNK
     Route: 065
  9. WELLBUTRIN [Concomitant]
     Active Substance: BUPROPION HYDROCHLORIDE
     Dosage: 150 MG, BID
     Route: 065
  10. SEROQUEL [Concomitant]
     Active Substance: QUETIAPINE FUMARATE
     Indication: PRODUCT USED FOR UNKNOWN INDICATION
     Dosage: 100 MG, QD (AT BED TIME)
     Route: 065
  11. LAMICTAL [Concomitant]
     Active Substance: LAMOTRIGINE
     Indication: PRODUCT USED FOR UNKNOWN INDICATION
     Dosage: 25 MG, UNK
     Route: 065
  12. TRILEPTAL [Concomitant]
     Active Substance: OXCARBAZEPINE
     Indication: PRODUCT USED FOR UNKNOWN INDICATION
     Dosage: 1050 MG, UNK
     Route: 065
  13. LITHOBID [Concomitant]
     Active Substance: LITHIUM CARBONATE
     Indication: BIPOLAR DISORDER
     Dosage: 900 MG, UNK
     Route: 065
  14. LITHOBID [Concomitant]
     Active Substance: LITHIUM CARBONATE
     Dosage: 300 MG (SR), Q3HR
     Route: 065

REACTIONS (38)
  - Psychosexual disorder [Recovered/Resolved]
  - Impulsive behaviour [Recovered/Resolved]
  - Anxiety [Unknown]
  - Urinary incontinence [Unknown]
  - Emotional distress [Unknown]
  - Behavioral addiction [Recovered/Resolved]
  - Injury [Unknown]
  - Vaginal haemorrhage [Unknown]
  - Constipation [Unknown]
  - Weight increased [Unknown]
  - Impulse-control disorder [Recovered/Resolved]
  - Suicidal ideation [Unknown]
  - Loss of employment [Unknown]
  - Mental disorder [Unknown]
  - Personality disorder [Recovered/Resolved]
  - Abdominal pain lower [Unknown]
  - Obsessive-compulsive disorder [Recovering/Resolving]
  - Gambling disorder [Not Recovered/Not Resolved]
  - Theft [Unknown]
  - Ovarian cyst ruptured [Unknown]
  - Eating disorder [Unknown]
  - Menstrual disorder [Unknown]
  - Compulsive shopping [Unknown]
  - Hypersexuality [Unknown]
  - Diarrhoea [Unknown]
  - Nausea [Unknown]
  - Sexually transmitted disease [Recovered/Resolved]
  - Psychological trauma [Unknown]
  - Dysplasia [Unknown]
  - Neuropsychiatric symptoms [Unknown]
  - Weight decreased [Unknown]
  - Shoplifting [Unknown]
  - Bacterial vaginosis [Unknown]
  - Sexually inappropriate behaviour [Recovering/Resolving]
  - Thirst [Unknown]
  - Insomnia [Unknown]
  - Vomiting [Unknown]
  - Economic problem [Unknown]

NARRATIVE: CASE EVENT DATE: 200312
